FAERS Safety Report 6759253-7 (Version None)
Quarter: 2010Q2

REPORT INFORMATION
  Report Type: 
  Country: None (occurrence: None)
  Receive Date: 20100607
  Receipt Date: 20100525
  Transmission Date: 20101027
  Serious: Yes (Other)
  Sender: FDA-Public Use
  Company Number: CA-PFIZER INC-2010066003

PATIENT
  Age: 55 Year
  Sex: Female

DRUGS (2)
  1. DILANTIN [Suspect]
     Indication: CONVULSION PROPHYLAXIS
     Dosage: UNK
     Dates: start: 20000101, end: 20000101
  2. CANNABIS [Concomitant]
     Indication: CONVULSION PROPHYLAXIS
     Dosage: UNK

REACTIONS (2)
  - DRUG LEVEL ABOVE THERAPEUTIC [None]
  - LIVER INJURY [None]
